FAERS Safety Report 4390965-9 (Version None)
Quarter: 2004Q3

REPORT INFORMATION
  Report Type: 
  Country: None (occurrence: None)
  Receive Date: 20040706
  Receipt Date: 20040628
  Transmission Date: 20050211
  Serious: Yes (Hospitalization)
  Sender: FDA-Public Use
  Company Number: 04-06-0920

PATIENT
  Age: 43 Year
  Sex: Male

DRUGS (3)
  1. IPRATROPIUM BROMIDE [Suspect]
     Indication: BRONCHOSPASM
     Dosage: 0.4Q6H X1
  2. MESNA [Concomitant]
  3. SODIUM CHLORIDE INJ [Concomitant]

REACTIONS (1)
  - ILEUS PARALYTIC [None]
